FAERS Safety Report 21018139 (Version 1)
Quarter: 2022Q2

REPORT INFORMATION
  Report Type: Spontaneous
  Country: US (occurrence: None)
  Receive Date: 20220628
  Receipt Date: 20220628
  Transmission Date: 20220721
  Serious: Yes (Other)
  Sender: FDA-Public Use
  Company Number: None

PATIENT
  Age: 62 Year
  Sex: Female
  Weight: 45 kg

DRUGS (4)
  1. PAXLOVID [Suspect]
     Active Substance: NIRMATRELVIR\RITONAVIR
     Indication: COVID-19
     Dosage: OTHER QUANTITY : 3 TABLET(S);?FREQUENCY : EVERY 12 HOURS;?
     Route: 048
     Dates: start: 20220627, end: 20220628
  2. Roprinole [Concomitant]
  3. VITAMINS [Concomitant]
     Active Substance: VITAMINS
  4. Cinnamon Apple herbal tea [Concomitant]

REACTIONS (2)
  - Muscle spasticity [None]
  - Hypoaesthesia [None]

NARRATIVE: CASE EVENT DATE: 20220628
